FAERS Safety Report 10785781 (Version 3)
Quarter: 2015Q1

REPORT INFORMATION
  Report Type: Spontaneous
  Country: US (occurrence: None)
  Receive Date: 20150209
  Receipt Date: 20150225
  Transmission Date: 20150721
  Serious: Yes (Other)
  Sender: FDA-Public Use
  Company Number: ADR-2014-02465

PATIENT
  Age: 59 Year
  Sex: Female

DRUGS (3)
  1. PERCOCET [Suspect]
     Active Substance: ACETAMINOPHEN\OXYCODONE HYDROCHLORIDE
     Dosage: THREE TIMES/DAY
  2. BUPIVACAINE [Suspect]
     Active Substance: BUPIVACAINE
     Indication: MUSCLE SPASTICITY
     Dosage: SEE B. 5 FOR DOSE, FREQUENCY + ROUTE USED
  3. BACLOFEN INTRATHECAL [Suspect]
     Active Substance: BACLOFEN
     Indication: MUSCLE SPASTICITY
     Dosage: SEE B. 5 FOR DOSE, FREQUENCY + ROUTE USED

REACTIONS (11)
  - Muscle spasticity [None]
  - Muscle spasms [None]
  - Victim of crime [None]
  - Pain in extremity [None]
  - Condition aggravated [None]
  - Lumbar vertebral fracture [None]
  - Immobile [None]
  - Pain [None]
  - Inadequate analgesia [None]
  - Therapeutic response decreased [None]
  - Performance status decreased [None]

NARRATIVE: CASE EVENT DATE: 20141219
